FAERS Safety Report 23671820 (Version 2)
Quarter: 2024Q2

REPORT INFORMATION
  Report Type: Report from Study
  Country: CD (occurrence: CD)
  Receive Date: 20240326
  Receipt Date: 20240402
  Transmission Date: 20240716
  Serious: Yes (Death, Other)
  Sender: FDA-Public Use
  Company Number: CD-SA-SAC20240322000500

PATIENT
  Age: 60 Year
  Sex: Male

DRUGS (1)
  1. FEXINIDAZOLE [Suspect]
     Active Substance: FEXINIDAZOLE
     Indication: African trypanosomiasis
     Dosage: UNK
     Route: 048
     Dates: start: 20220225, end: 20220306

REACTIONS (1)
  - Cerebrovascular accident [Fatal]
